FAERS Safety Report 14848425 (Version 4)
Quarter: 2019Q2

REPORT INFORMATION
  Report Type: Report from Study
  Country: BE (occurrence: BE)
  Receive Date: 20180504
  Receipt Date: 20190408
  Transmission Date: 20190711
  Serious: Yes (Death, Life-Threatening, Hospitalization)
  Sender: FDA-Public Use
  Company Number: BE-ELI_LILLY_AND_COMPANY-BE201805001114

PATIENT
  Age: 42 Year
  Sex: Male
  Weight: 88 kg

DRUGS (17)
  1. DAFALGAN [Concomitant]
     Active Substance: ACETAMINOPHEN
     Indication: BONE PAIN
     Dosage: 1 G, UNK
     Route: 048
     Dates: start: 20160531, end: 20160801
  2. AVELUMAB [Concomitant]
     Active Substance: AVELUMAB
     Dosage: UNK, CYCLICAL
     Route: 042
  3. CARBOPLATIN. [Concomitant]
     Active Substance: CARBOPLATIN
     Dosage: UNK UNK, UNKNOWN
     Route: 042
     Dates: start: 20160725
  4. TEMESTA [LORAZEPAM] [Concomitant]
     Active Substance: LORAZEPAM
     Indication: INSOMNIA
     Dosage: UNK, 1X/DAY
     Route: 048
     Dates: start: 201607
  5. REDOMEX [Concomitant]
     Active Substance: AMITRIPTYLINE HYDROCHLORIDE
     Indication: BONE PAIN
     Dosage: 25 MG, 1X/DAY
     Route: 048
     Dates: start: 20160617
  6. GEMCITABINE HYDROCHLORIDE. [Suspect]
     Active Substance: GEMCITABINE HYDROCHLORIDE
     Indication: NON-SMALL CELL LUNG CANCER
     Dosage: UNK, UNKNOWN
     Route: 042
     Dates: start: 20160718
  7. NEPHRON [Concomitant]
     Indication: BONE PAIN
     Dosage: 5 MG X2/DAY
     Route: 048
     Dates: start: 20160720
  8. MOVICOL [MACROGOL 3350;POTASSIUM CHLORIDE;SOD [Concomitant]
     Indication: CONSTIPATION
     Dosage: UNK
     Dates: start: 201607
  9. AVELUMAB [Concomitant]
     Active Substance: AVELUMAB
     Indication: NON-SMALL CELL LUNG CANCER
     Dosage: UNK, CYCLICAL
     Route: 042
  10. AVELUMAB [Concomitant]
     Active Substance: AVELUMAB
     Dosage: 900 MG, CYCLICAL
     Route: 042
     Dates: end: 20160620
  11. QVAR [Concomitant]
     Active Substance: BECLOMETHASONE DIPROPIONATE
     Indication: COUGH
     Dosage: 50 UG (PUFF)
     Route: 065
     Dates: start: 20160427
  12. VALIUM [Concomitant]
     Active Substance: DIAZEPAM
     Indication: BONE PAIN
     Dosage: 10 MG, 1X/DAY
     Route: 048
     Dates: start: 20160719
  13. METHADONE [METHADONE HYDROCHLORIDE] [Concomitant]
     Indication: BONE PAIN
     Dosage: 5 MG X2/DAY
     Route: 048
     Dates: start: 20160718
  14. GEMCITABINE HYDROCHLORIDE. [Suspect]
     Active Substance: GEMCITABINE HYDROCHLORIDE
     Dosage: UNK UNK, UNKNOWN
     Route: 042
     Dates: start: 20160725
  15. CARBOPLATIN. [Concomitant]
     Active Substance: CARBOPLATIN
     Indication: NON-SMALL CELL LUNG CANCER
     Dosage: UNK
     Route: 042
     Dates: start: 20160718
  16. AVELUMAB [Concomitant]
     Active Substance: AVELUMAB
     Dosage: 970 MG, CYCLIC
     Route: 042
     Dates: start: 20160411
  17. AVELUMAB [Concomitant]
     Active Substance: AVELUMAB
     Dosage: UNK, CYCLICAL
     Route: 042

REACTIONS (5)
  - Pneumonia [Recovered/Resolved]
  - Leukopenia [Recovered/Resolved]
  - Febrile neutropenia [Recovered/Resolved]
  - Sepsis [Recovered/Resolved]
  - Thrombocytopenia [Recovered/Resolved]

NARRATIVE: CASE EVENT DATE: 20160801
